FAERS Safety Report 4415530-6 (Version None)
Quarter: 2004Q3

REPORT INFORMATION
  Report Type: 
  Country: None (occurrence: None)
  Receive Date: 20040730
  Receipt Date: 20040715
  Transmission Date: 20050211
  Serious: Yes (Hospitalization, Disabling)
  Sender: FDA-Public Use
  Company Number: F01200402011

PATIENT
  Age: 69 Year
  Sex: Female

DRUGS (1)
  1. (FONDAPARINUX SODIUM) - SOLUTION - UNIT DOSE : UNKNOWN [Suspect]
     Indication: ORTHOPEDIC PROCEDURE
     Dosage: 2.5 MG   SUBCUTANEOUS
     Route: 058
     Dates: start: 20040401, end: 20040414

REACTIONS (3)
  - CEREBRAL HAEMATOMA [None]
  - HAEMORRHAGIC STROKE [None]
  - HEMIPARESIS [None]
